FAERS Safety Report 23077795 (Version 3)
Quarter: 2024Q1

REPORT INFORMATION
  Report Type: Spontaneous
  Country: US (occurrence: US)
  Receive Date: 20231018
  Receipt Date: 20240122
  Transmission Date: 20240409
  Serious: No
  Sender: FDA-Public Use
  Company Number: US-GSK-US2023AMR141510

PATIENT
  Age: 75 Year
  Sex: Female

DRUGS (1)
  1. BENLYSTA [Suspect]
     Active Substance: BELIMUMAB
     Indication: Systemic lupus erythematosus
     Dosage: UNK

REACTIONS (6)
  - Hot flush [Unknown]
  - Decreased appetite [Unknown]
  - Abdominal discomfort [Unknown]
  - Fatigue [Unknown]
  - Injection site pain [Unknown]
  - Product dose omission issue [Unknown]

NARRATIVE: CASE EVENT DATE: 20231007
